FAERS Safety Report 4365552-9 (Version None)
Quarter: 2004Q2

REPORT INFORMATION
  Report Type: 
  Country: None (occurrence: None)
  Receive Date: 20040526
  Receipt Date: 20040526
  Transmission Date: 20050107
  Serious: Yes (Hospitalization)
  Sender: FDA-Public Use
  Company Number: None

PATIENT
  Age: 41 Year
  Sex: Female
  Weight: 53.5244 kg

DRUGS (5)
  1. ZOMIG [Suspect]
     Indication: MIGRAINE
     Dosage: NOT DOCUMENTED
  2. PREMARIN [Concomitant]
  3. INDERAL LA [Concomitant]
  4. DEPAKOTE [Concomitant]
  5. ZYRTEC [Concomitant]

REACTIONS (3)
  - ABDOMINAL PAIN [None]
  - NAUSEA [None]
  - RECTAL HAEMORRHAGE [None]
